FAERS Safety Report 5631091-8 (Version None)
Quarter: 2008Q1

REPORT INFORMATION
  Report Type: 
  Country: None (occurrence: None)
  Receive Date: 20080219
  Receipt Date: 20080205
  Transmission Date: 20080703
  Serious: Yes (Hospitalization)
  Sender: FDA-Public Use
  Company Number: PL-GENENTECH-255863

PATIENT
  Sex: Male
  Weight: 87 kg

DRUGS (1)
  1. BEVACIZUMAB [Suspect]
     Indication: NON-SMALL CELL LUNG CANCER
     Dosage: 1300 MG, Q3W
     Route: 042

REACTIONS (1)
  - ANAEMIA [None]
